FAERS Safety Report 15779114 (Version 6)
Quarter: 2019Q2

REPORT INFORMATION
  Report Type: Spontaneous
  Country: FR (occurrence: FR)
  Receive Date: 20190101
  Receipt Date: 20190621
  Transmission Date: 20190711
  Serious: Yes (Hospitalization, Disabling, Other)
  Sender: FDA-Public Use
  Company Number: FR-ASCEND THERAPEUTICS-2060731

PATIENT
  Age: 28 Year
  Sex: Female

DRUGS (22)
  1. ESTROGEL [Suspect]
     Active Substance: ESTRADIOL
     Dates: start: 20070528, end: 2009
  2. CYPROTERONE ACETATE (CYPROTERONE ACETATE)?INDICATION FOR USE: HAIR LOS [Suspect]
     Active Substance: CYPROTERONE ACETATE
     Route: 048
     Dates: start: 20070528, end: 2009
  3. ESTRADIOL. [Suspect]
     Active Substance: ESTRADIOL
     Route: 048
     Dates: start: 2008
  4. ESTRADIOL. [Suspect]
     Active Substance: ESTRADIOL
     Route: 048
     Dates: start: 20090705, end: 20170920
  5. CYPROTERONE ACETATE (CYPROTERONE ACETATE) [Suspect]
     Active Substance: CYPROTERONE ACETATE
     Route: 048
     Dates: start: 20110830
  6. CYPERTERONE ACETATE (CYPROTERONE ACETATE) [Suspect]
     Active Substance: CYPROTERONE ACETATE
     Route: 048
     Dates: start: 20130816, end: 20140818
  7. CYPROTERONE ACETATE (CYPROTERONE ACETATE) [Suspect]
     Active Substance: CYPROTERONE ACETATE
     Route: 048
     Dates: start: 20090705, end: 20100820
  8. CYPROTERONE ACETATE (CYPROTERONE ACETATE) [Suspect]
     Active Substance: CYPROTERONE ACETATE
     Route: 048
     Dates: start: 20140818, end: 20170510
  9. ESTRADIOL. [Suspect]
     Active Substance: ESTRADIOL
     Route: 048
  10. ANDROCUR (CYPROTERONE ACETATE) [Suspect]
     Active Substance: CYPROTERONE ACETATE
     Dates: start: 2008, end: 20170920
  11. CYPROTERONE ACETATE (CYPROTERONE ACETATE)?INDICATION FOR USE: ACNE [Suspect]
     Active Substance: CYPROTERONE ACETATE
     Route: 048
     Dates: start: 2008
  12. CYPROTERONE ACETATE (CYPROTERONE ACTETATE) [Suspect]
     Active Substance: CYPROTERONE ACETATE
     Route: 048
     Dates: end: 20130816
  13. CYPROTERONE ACETATE (CYPROTERONE ACETATE) [Suspect]
     Active Substance: CYPROTERONE ACETATE
     Route: 048
     Dates: start: 20110705, end: 20110830
  14. CYPROTERONE ACETATE [Suspect]
     Active Substance: CYPROTERONE ACETATE
     Route: 048
     Dates: start: 20161124
  15. CYPROTERONE ACETATE (CYPROTERONE ACETATE) [Suspect]
     Active Substance: CYPROTERONE ACETATE
     Route: 048
     Dates: start: 20101221, end: 20110705
  16. OROMONE (ESTRADIOL) [Suspect]
     Active Substance: ESTRADIOL
     Dates: start: 2008, end: 20170920
  17. CYPROTERONE ACETATE (CYPROTERONE ACETATE)?INDICATION FOR USE: ALOPECIA [Suspect]
     Active Substance: CYPROTERONE ACETATE
     Route: 048
     Dates: start: 2007
  18. CYPROTERONE ACETATE (CYPROTERONE ACETATE) [Suspect]
     Active Substance: CYPROTERONE ACETATE
     Route: 048
     Dates: start: 20100715
  19. CYPROTERONE ACETATE/ETHINYLESTRADIOL (CYPROTERONE ACETATE)?INDICATION [Suspect]
     Active Substance: CYPROTERONE ACETATE\ETHINYL ESTRADIOL
     Dates: end: 20110528
  20. CYPROTERONE ACETATE/ETHINYLESTRADIOL (CYPROTERONE ACETATE)?INDICATION [Suspect]
     Active Substance: CYPROTERONE ACETATE\ETHINYL ESTRADIOL
  21. CYPROTERONE ACETATE/ETHINYLESTRADIOL (CYPROTERONE ACETATE) [Suspect]
     Active Substance: CYPROTERONE ACETATE\ETHINYL ESTRADIOL
     Dates: start: 1997
  22. CYPROTERONE ACETATE [Suspect]
     Active Substance: CYPROTERONE ACETATE
     Route: 048
     Dates: start: 20170510, end: 20170920

REACTIONS (21)
  - Nervous system disorder [Unknown]
  - Cognitive disorder [Unknown]
  - Fatigue [Unknown]
  - Facial paralysis [Not Recovered/Not Resolved]
  - Balance disorder [Not Recovered/Not Resolved]
  - Meningioma [Not Recovered/Not Resolved]
  - Paraesthesia [Not Recovered/Not Resolved]
  - Memory impairment [Unknown]
  - Hemiplegia [Unknown]
  - Language disorder [Unknown]
  - Gait disturbance [Not Recovered/Not Resolved]
  - Hemiplegia [Not Recovered/Not Resolved]
  - Aphasia [Unknown]
  - Hemiparaesthesia [Not Recovered/Not Resolved]
  - Haematoma [Unknown]
  - Coordination abnormal [Not Recovered/Not Resolved]
  - Weight increased [Not Recovered/Not Resolved]
  - Disorientation [Unknown]
  - Diplopia [Not Recovered/Not Resolved]
  - Dysarthria [Not Recovered/Not Resolved]
  - Muscular weakness [Not Recovered/Not Resolved]

NARRATIVE: CASE EVENT DATE: 2017
